FAERS Safety Report 5335540-4 (Version None)
Quarter: 2007Q2

REPORT INFORMATION
  Report Type: 
  Country: None (occurrence: None)
  Receive Date: 20070522
  Receipt Date: 20070507
  Transmission Date: 20071010
  Serious: Yes (Hospitalization)
  Sender: FDA-Public Use
  Company Number: US-CVT-070107

PATIENT
  Age: 54 Year
  Sex: Male
  Weight: 106.6 kg

DRUGS (16)
  1. RANEXA [Suspect]
     Indication: ANGINA PECTORIS
     Dosage: 500 MG, QD, ORAL
     Route: 048
     Dates: start: 20060928
  2. ST. JOHN'S WORT (HYPERICUM PERFORATUM) [Concomitant]
  3. VIAGRA [Concomitant]
  4. AVAPRO [Concomitant]
  5. METOPROLOL/00376901/ (METOPROLOL) [Concomitant]
  6. MVI (VITAMINS NOS) [Concomitant]
  7. NIACIN [Concomitant]
  8. ASPIRIN [Concomitant]
  9. PRILOSEC [Concomitant]
  10. OMEGA 3 (FISH OIL) [Concomitant]
  11. COREG [Concomitant]
  12. CRESTOR/01588601/ (ROSUVASTATIN) [Concomitant]
  13. NITROGLYCERIN [Concomitant]
  14. ROZEREM [Concomitant]
  15. PEPCID COMPLETE (FAMOTIDINE) [Concomitant]
  16. EXCEDRIN /00214201/ (ACETYLSALICYLIC ACID, CAFFEINE, PARACETAMOL, SALI [Concomitant]

REACTIONS (2)
  - CORONARY ARTERY DISEASE [None]
  - ERECTILE DYSFUNCTION [None]
